FAERS Safety Report 20039824 (Version 1)
Quarter: 2021Q4

REPORT INFORMATION
  Report Type: Spontaneous
  Country: US (occurrence: US)
  Receive Date: 20211106
  Receipt Date: 20211106
  Transmission Date: 20220303
  Serious: No
  Sender: FDA-Public Use
  Company Number: US-AUROBINDO-AUR-APL-2021-027261

PATIENT
  Age: 66 Year
  Sex: Female
  Weight: 55.61 kg

DRUGS (5)
  1. FLUCONAZOLE [Suspect]
     Active Substance: FLUCONAZOLE
     Indication: Coccidioidomycosis
     Dosage: TWO TIMES A DAY
     Route: 048
     Dates: start: 202010, end: 202103
  2. LISINOPRIL [Concomitant]
     Active Substance: LISINOPRIL
     Indication: Thyroid disorder
     Dosage: 40 MILLIGRAM, DAILY
     Route: 065
  3. UNITHROID [Concomitant]
     Active Substance: LEVOTHYROXINE SODIUM
     Indication: Thyroid disorder
     Dosage: 150 MICROGRAM
     Route: 065
  4. VITAMINS [Concomitant]
     Active Substance: VITAMINS
     Indication: Product used for unknown indication
     Dosage: UNK
     Route: 065
  5. IMMUNE SUPPORT [Concomitant]
     Indication: Product used for unknown indication
     Dosage: UNK
     Route: 065

REACTIONS (3)
  - Alopecia [Recovered/Resolved]
  - Taste disorder [Recovered/Resolved]
  - Headache [Recovered/Resolved]
